FAERS Safety Report 9402976 (Version 1)
Quarter: 2013Q3

REPORT INFORMATION
  Report Type: Spontaneous
  Country: US (occurrence: None)
  Receive Date: 20130715
  Receipt Date: 20130715
  Transmission Date: 20140515
  Serious: No
  Sender: FDA-Public Use
  Company Number: None

PATIENT
  Age: 51 None
  Sex: Male
  Weight: 65.77 kg

DRUGS (9)
  1. ZETIA [Suspect]
     Indication: BLOOD CHOLESTEROL INCREASED
     Route: 048
     Dates: start: 20130628, end: 20130709
  2. PAXIL [Concomitant]
  3. KLONOPIN [Concomitant]
  4. LEVOXYL [Concomitant]
  5. ACIPHEX [Concomitant]
  6. ZEGERID [Concomitant]
  7. ASTELIN [Concomitant]
  8. VITAMIN D [Concomitant]
  9. MUTI-VITAMIN DAILY [Concomitant]

REACTIONS (12)
  - Vision blurred [None]
  - Fatigue [None]
  - Hyperacusis [None]
  - Increased appetite [None]
  - Insomnia [None]
  - Tinnitus [None]
  - Mental disorder [None]
  - Feeling abnormal [None]
  - Torticollis [None]
  - Headache [None]
  - Dyspepsia [None]
  - Condition aggravated [None]
